FAERS Safety Report 9974070 (Version 2)
Quarter: 2015Q2

REPORT INFORMATION
  Report Type: Spontaneous
  Country: US (occurrence: US)
  Receive Date: 20140306
  Receipt Date: 20150609
  Transmission Date: 20150821
  Serious: Yes (Other)
  Sender: FDA-Public Use
  Company Number: US-GLAXOSMITHKLINE-A1062693A

PATIENT
  Sex: Female

DRUGS (3)
  1. COREG CR [Suspect]
     Active Substance: CARVEDILOL PHOSPHATE
     Indication: CARDIAC DISORDER
     Dosage: 40 MG, 1D
     Route: 048
     Dates: start: 201402
  2. COUMADIN [Concomitant]
     Active Substance: WARFARIN SODIUM
  3. COREG CR [Suspect]
     Active Substance: CARVEDILOL PHOSPHATE
     Indication: BLOOD PRESSURE
     Dosage: 80 MG, 1D
     Route: 048
     Dates: start: 201402

REACTIONS (12)
  - Throat tightness [Unknown]
  - Sensory loss [Not Recovered/Not Resolved]
  - Cerebral haemorrhage [Unknown]
  - VIIth nerve paralysis [Not Recovered/Not Resolved]
  - Nausea [Not Recovered/Not Resolved]
  - Myocardial infarction [Unknown]
  - Loss of consciousness [Unknown]
  - Erythema [Unknown]
  - Cardiac disorder [Unknown]
  - Vomiting [Not Recovered/Not Resolved]
  - Cerebrovascular accident [Unknown]
  - Monoparesis [Unknown]

NARRATIVE: CASE EVENT DATE: 2013
